FAERS Safety Report 8105031-6 (Version None)
Quarter: 2012Q1

REPORT INFORMATION
  Report Type: 
  Country: None (occurrence: None)
  Receive Date: 20120201
  Receipt Date: 20120128
  Transmission Date: 20120608
  Serious: Yes (Other)
  Sender: FDA-Public Use
  Company Number: CN-GLAXOSMITHKLINE-B0778466A

PATIENT
  Sex: Female
  Weight: 3.2 kg

DRUGS (2)
  1. BACTROBAN [Suspect]
     Indication: RASH
     Route: 061
     Dates: start: 20120127, end: 20120128
  2. CHINESE MEDICATION [Concomitant]
     Indication: RASH
     Route: 061
     Dates: start: 20120127, end: 20120128

REACTIONS (2)
  - YELLOW SKIN [None]
  - JAUNDICE [None]
